FAERS Safety Report 10566649 (Version 2)
Quarter: 2014Q4

REPORT INFORMATION
  Report Type: Report from Study
  Country: US (occurrence: US)
  Receive Date: 20141105
  Receipt Date: 20141105
  Transmission Date: 20150529
  Serious: Yes (Hospitalization)
  Sender: FDA-Public Use
  Company Number: US-GLAXOSMITHKLINE-Z0022386A

PATIENT
  Age: 66 Year
  Sex: Female
  Weight: 54.6 kg

DRUGS (2)
  1. MK-3475 SOLUTION FOR INFUSION [Suspect]
     Active Substance: PEMBROLIZUMAB
     Indication: RENAL CELL CARCINOMA
     Dosage: 10 MG/KG, CYC
     Route: 042
     Dates: start: 20140218
  2. PAZOPANIB TABLET [Suspect]
     Active Substance: PAZOPANIB
     Indication: RENAL CELL CARCINOMA
     Dosage: 800 MG, QD
     Route: 048
     Dates: start: 20140218

REACTIONS (3)
  - Aspartate aminotransferase increased [Recovered/Resolved]
  - Blood bilirubin increased [Recovered/Resolved]
  - Alanine aminotransferase increased [Recovered/Resolved]

NARRATIVE: CASE EVENT DATE: 20140325
